FAERS Safety Report 6187680-8 (Version None)
Quarter: 2009Q2

REPORT INFORMATION
  Report Type: 
  Country: None (occurrence: None)
  Receive Date: 20090511
  Receipt Date: 20090504
  Transmission Date: 20091009
  Serious: Yes (Death)
  Sender: FDA-Public Use
  Company Number: 262557

PATIENT
  Age: 65 Year
  Sex: Male

DRUGS (12)
  1. CYTARABINE [Suspect]
     Indication: DIFFUSE LARGE B-CELL LYMPHOMA
  2. METHOTREXATE [Suspect]
     Indication: DIFFUSE LARGE B-CELL LYMPHOMA
     Dosage: INTRATHECAL
     Route: 037
  3. CISPLATIN [Suspect]
     Indication: DIFFUSE LARGE B-CELL LYMPHOMA
  4. DEXAMETHASONE 4MG TAB [Suspect]
     Indication: DIFFUSE LARGE B-CELL LYMPHOMA
  5. (RITUXIMAB) [Suspect]
     Indication: DIFFUSE LARGE B-CELL LYMPHOMA
  6. CYCLOPHOSPHAMIDE [Suspect]
     Indication: DIFFUSE LARGE B-CELL LYMPHOMA
  7. PREDNISONE [Suspect]
     Indication: DIFFUSE LARGE B-CELL LYMPHOMA
  8. (THERAPEUTIC RADIOPHARMACEUTICALS) [Suspect]
     Indication: DIFFUSE LARGE B-CELL LYMPHOMA
     Dosage: 30 GY,
  9. DOXORUBICIN HCL [Suspect]
     Indication: DIFFUSE LARGE B-CELL LYMPHOMA
  10. VINCRISTINE [Suspect]
     Indication: DIFFUSE LARGE B-CELL LYMPHOMA
  11. PIPERACILLIN SODIUM AND TAZOBACTAM SODIUM [Concomitant]
  12. NEUPOGEN [Concomitant]

REACTIONS (22)
  - ADRENAL DISORDER [None]
  - BLOOD GROWTH HORMONE DECREASED [None]
  - BLOOD LACTATE DEHYDROGENASE INCREASED [None]
  - BLOOD OSMOLARITY DECREASED [None]
  - BLOOD PROLACTIN DECREASED [None]
  - BLOOD SODIUM DECREASED [None]
  - BONE MARROW TUMOUR CELL INFILTRATION [None]
  - CENTRAL NERVOUS SYSTEM LYMPHOMA [None]
  - CYTOMEGALOVIRUS INFECTION [None]
  - DIABETES INSIPIDUS [None]
  - ENDOCRINE DISORDER [None]
  - HAEMOGLOBIN DECREASED [None]
  - HYPOTENSION [None]
  - HYPOTHALAMO-PITUITARY DISORDER [None]
  - LIVER DISORDER [None]
  - LUNG INFECTION [None]
  - LYMPHADENOPATHY [None]
  - PANCREAS INFECTION [None]
  - PLATELET COUNT DECREASED [None]
  - SPLEEN DISORDER [None]
  - THYROXINE FREE DECREASED [None]
  - WHITE BLOOD CELL COUNT DECREASED [None]
